FAERS Safety Report 9266315 (Version 1)
Quarter: 2013Q2

REPORT INFORMATION
  Report Type: Spontaneous
  Country: US (occurrence: US)
  Receive Date: 20130502
  Receipt Date: 20130502
  Transmission Date: 20140414
  Serious: Yes (Other)
  Sender: FDA-Public Use
  Company Number: US-BIOGENIDEC-2013BI037818

PATIENT
  Age: 64 Year
  Sex: Female

DRUGS (4)
  1. TYSABRI [Suspect]
     Indication: MULTIPLE SCLEROSIS
     Route: 042
     Dates: start: 20130321
  2. COPAXONE [Concomitant]
     Indication: MULTIPLE SCLEROSIS
     Dates: start: 2013
  3. SYNCHROMED [Concomitant]
     Indication: NEURALGIA
     Dates: start: 2013
  4. NORCO [Concomitant]
     Indication: NEURALGIA

REACTIONS (6)
  - Neuropathy peripheral [Recovered/Resolved]
  - Arthralgia [Recovered/Resolved]
  - Drug delivery device implantation [Unknown]
  - Pain in extremity [Recovered/Resolved]
  - Brain neoplasm [Unknown]
  - Pain [Recovered/Resolved]
